FAERS Safety Report 5869408-1 (Version None)
Quarter: 2008Q3

REPORT INFORMATION
  Report Type: 
  Country: None (occurrence: None)
  Receive Date: 20080828
  Receipt Date: 20080818
  Transmission Date: 20090109
  Serious: Yes (Disabling, Other)
  Sender: FDA-Public Use
  Company Number: PHHY2008GB17056

PATIENT
  Age: 29 Year
  Sex: Male
  Weight: 87 kg

DRUGS (5)
  1. CLOZAPINE [Suspect]
     Indication: SCHIZOPHRENIA
     Dosage: 600 MG, ORAL
     Route: 048
     Dates: start: 20070901
  2. CLARITHROMYCIN [Suspect]
     Indication: HELICOBACTER INFECTION
     Dosage: 500 MG, BID, ORAL
     Route: 048
     Dates: start: 20080626, end: 20080627
  3. AMOXICILLIN [Concomitant]
  4. KWELLS (HYOSCINE HYDROBROMIDE) [Concomitant]
  5. OMEPRAZOLE [Concomitant]

REACTIONS (2)
  - ANTIPSYCHOTIC DRUG LEVEL INCREASED [None]
  - GRAND MAL CONVULSION [None]
